FAERS Safety Report 7961256-1 (Version None)
Quarter: 2011Q4

REPORT INFORMATION
  Report Type: 
  Country: None (occurrence: None)
  Receive Date: 20111202
  Receipt Date: 20111117
  Transmission Date: 20120403
  Serious: Yes (Hospitalization, Other)
  Sender: FDA-Public Use
  Company Number: 2011P1011106

PATIENT
  Age: 23 Year
  Sex: Male
  Weight: 78.6084 kg

DRUGS (23)
  1. COLACE (DOCUSATE SODIUM) [Concomitant]
  2. LORATADINE [Concomitant]
  3. MEPRON [Concomitant]
  4. ATIVAN [Suspect]
     Indication: NAUSEA
     Dosage: 1 MG;Q6H,PRN;PO
     Route: 048
     Dates: start: 20110311
  5. UNKNOWN STUDY DRUG (NO PREF. NAME) [Suspect]
  6. MARINOL (DRONABINOL) (NO PREF. NAME) [Suspect]
     Indication: NAUSEA
     Dosage: 5 MG;TID,PRN;PO
     Route: 048
     Dates: start: 20110404, end: 20111016
  7. OMEPRAZOLE [Concomitant]
  8. CELEXA [Suspect]
     Indication: DEPRESSION
     Dates: start: 20110331
  9. MEPERIDINE HCL [Suspect]
     Indication: PAIN
     Dosage: Q96H;IV
     Route: 042
     Dates: start: 20111016
  10. HYDROCORTISONE/LIDOCAINE CREAM [Concomitant]
  11. NYSTATIN [Concomitant]
  12. DILAUDID [Suspect]
     Indication: PAIN
     Dosage: 2 MG;Q3H;PO
     Route: 048
     Dates: start: 20110628, end: 20111016
  13. CONCERTA [Concomitant]
  14. LIDOCAINE [Concomitant]
  15. POLYETHYLENE GLYCOL [Concomitant]
  16. CHLORHEXIDINE MOUTH WASH [Concomitant]
  17. FENTANYL CITRATE [Suspect]
     Indication: PAIN
     Dosage: 1 PATCH;Q72H;TDER
     Route: 062
     Dates: start: 20110919, end: 20111017
  18. KYTRIL (GRANISETRON) (NO PREF. NAME) [Suspect]
     Indication: NAUSEA
     Dosage: 1 MG;QD;PO
     Route: 048
     Dates: start: 20111006
  19. KYTRIL (GRANISETRON) (NO PREF. NAME) [Suspect]
     Indication: VOMITING
     Dosage: 1 MG;QD;PO
     Route: 048
     Dates: start: 20111006
  20. HYOSCINE HBR HYT [Suspect]
     Indication: NAUSEA
     Dosage: 1.5 MG;Q72H;TDER
     Route: 062
     Dates: start: 20111006, end: 20111014
  21. HYOSCINE HBR HYT [Suspect]
     Indication: VOMITING
     Dosage: 1.5 MG;Q72H;TDER
     Route: 062
     Dates: start: 20111006, end: 20111014
  22. SENNOSIDES (SENNOSIDE A+B) [Concomitant]
  23. FAMVIR [Concomitant]

REACTIONS (13)
  - VOMITING [None]
  - PNEUMONIA FUNGAL [None]
  - ABDOMINAL PAIN [None]
  - HALLUCINATION [None]
  - NAUSEA [None]
  - DYSKINESIA [None]
  - FEBRILE NEUTROPENIA [None]
  - CLOSTRIDIAL INFECTION [None]
  - CHEST PAIN [None]
  - CONFUSIONAL STATE [None]
  - TOXICITY TO VARIOUS AGENTS [None]
  - MUSCLE SPASMS [None]
  - NEUTROPENIC INFECTION [None]
